FAERS Safety Report 20984177 (Version 1)
Quarter: 2022Q2

REPORT INFORMATION
  Report Type: Report from Study
  Country: CA (occurrence: CA)
  Receive Date: 20220621
  Receipt Date: 20220621
  Transmission Date: 20220721
  Serious: Yes (Other)
  Sender: FDA-Public Use
  Company Number: CA-NOVARTISPH-NVSC2022CA078752

PATIENT
  Age: 8 Year
  Sex: Male

DRUGS (1)
  1. ILARIS [Suspect]
     Active Substance: CANAKINUMAB
     Indication: Cryopyrin associated periodic syndrome
     Dosage: UNK (60, EVERY 8 WEEKS)
     Route: 058
     Dates: start: 20220218

REACTIONS (3)
  - Blood pressure decreased [Unknown]
  - Urticaria [Unknown]
  - COVID-19 [Unknown]

NARRATIVE: CASE EVENT DATE: 20220613
